FAERS Safety Report 8407920 (Version 9)
Quarter: 2014Q1

REPORT INFORMATION
  Report Type: Spontaneous
  Country: US (occurrence: US)
  Receive Date: 20120215
  Receipt Date: 20140123
  Transmission Date: 20141002
  Serious: Yes (Life-Threatening, Hospitalization)
  Sender: FDA-Public Use
  Company Number: US-ROCHE-1039455

PATIENT
  Age: 12 Year
  Sex: Female
  Weight: 56.75 kg

DRUGS (26)
  1. XOLAIR [Suspect]
     Indication: PRODUCT USED FOR UNKNOWN INDICATION
     Dosage: DATE OF LAST DOSE PRIOR TO ADJUDICATED EVENT: 15/NOV/2011
     Route: 065
     Dates: start: 201005
  2. SYMBICORT [Concomitant]
     Indication: ASTHMA
     Dosage: 160/4.5 TWO PUFFS
     Route: 065
  3. QVAR [Concomitant]
     Indication: ASTHMA
     Dosage: 1 PUFF
     Route: 065
     Dates: start: 20101004
  4. ZYRTEC [Concomitant]
     Indication: ASTHMA
     Route: 048
     Dates: start: 20101004
  5. PREVACID [Concomitant]
     Indication: GASTROOESOPHAGEAL REFLUX DISEASE
     Route: 048
  6. ZOLOFT [Concomitant]
     Indication: BIPOLAR DISORDER
     Route: 048
  7. ZOLOFT [Concomitant]
     Indication: ANXIETY
     Dosage: EVERY MORNING
     Route: 048
     Dates: start: 201308
  8. DDAVP [Concomitant]
     Indication: ENURESIS
     Route: 048
  9. NASONEX [Concomitant]
     Indication: RHINITIS ALLERGIC
     Dosage: 2 PUFFS
     Route: 048
  10. ATARAX (UNITED STATES) [Concomitant]
     Indication: HYPERSENSITIVITY
     Route: 048
  11. GEODON (UNITED STATES) [Concomitant]
     Indication: AFFECTIVE DISORDER
     Route: 048
  12. GEODON (UNITED STATES) [Concomitant]
     Dosage: EVERY NIGHT
     Route: 048
     Dates: start: 20130901
  13. ADVAIR [Concomitant]
     Indication: ASTHMA
     Dosage: DOSE: 230/212 MCG, 2 PUFFS TWICE A DAY,
     Route: 050
  14. DICYCLOMINE [Concomitant]
     Indication: MUSCLE SPASMS
     Dosage: AS REQUIRED, EVERY DAY
     Route: 065
  15. THEOPHYLLINE [Concomitant]
     Indication: ASTHMA
     Dosage: EVERY DAY
     Route: 048
  16. DESMOPRESSIN ACETATE [Concomitant]
     Indication: ENURESIS
     Dosage: EVERY NIGHT
     Route: 048
  17. OMEPRAZOLE [Concomitant]
     Indication: GASTROOESOPHAGEAL REFLUX DISEASE
     Dosage: EVERY NIGHT
     Route: 048
  18. RANITIDINE [Concomitant]
     Indication: GASTROOESOPHAGEAL REFLUX DISEASE
     Route: 048
  19. CODEINE [Concomitant]
     Indication: SLEEP DISORDER
     Dosage: EVERY NIGHT
     Route: 048
  20. ALLEGRA [Concomitant]
     Indication: HYPERSENSITIVITY
     Route: 048
     Dates: start: 201308
  21. GUANFACINE [Concomitant]
     Indication: ANXIETY
     Dosage: EVERY MORNING
     Route: 048
     Dates: start: 201308
  22. VYVANSE [Concomitant]
     Dosage: EVERY MORNING
     Route: 048
     Dates: start: 201308
  23. BENADRYL (UNITED STATES) [Concomitant]
     Indication: HYPERSENSITIVITY
     Dosage: 50 MG AS REQUIRED
     Route: 048
  24. GEODON (UNITED STATES) [Concomitant]
     Route: 048
     Dates: start: 20130901
  25. CLONIDINE [Concomitant]
     Indication: INSOMNIA
     Route: 048
  26. PROAIR (UNITED STATES) [Concomitant]
     Indication: ASTHMA
     Dosage: 2 PUFFS
     Route: 065

REACTIONS (6)
  - Dyspnoea [Unknown]
  - Wheezing [Not Recovered/Not Resolved]
  - Asthma [Unknown]
  - Anaphylactic shock [Unknown]
  - Hypersensitivity [Unknown]
  - Urticaria [Unknown]
